FAERS Safety Report 7502575-2 (Version None)
Quarter: 2011Q2

REPORT INFORMATION
  Report Type: 
  Country: None (occurrence: None)
  Receive Date: 20110517
  Receipt Date: 20110502
  Transmission Date: 20111010
  Serious: Yes (Other)
  Sender: FDA-Public Use
  Company Number: 2010MA003234

PATIENT
  Sex: Female
  Weight: 87.9071 kg

DRUGS (21)
  1. CARDIZEM [Concomitant]
  2. CELEXA [Concomitant]
  3. ZOCOR [Concomitant]
  4. ZANTAC [Concomitant]
  5. VYTORIN [Concomitant]
  6. DIOVAN [Concomitant]
  7. PROTONIX [Concomitant]
  8. PRANDIN [Concomitant]
  9. PRIMIDONE [Concomitant]
  10. FENOFIBRATE [Concomitant]
  11. ZESTORETIC [Concomitant]
  12. NEURONTIN [Concomitant]
  13. LORTAB [Concomitant]
  14. BOTOX [Concomitant]
  15. AMBIEN [Concomitant]
  16. GLIMIPRIDE [Concomitant]
  17. METOCLOPRAMIDE [Suspect]
     Dosage: 5 MG;TID;PO
     Route: 048
     Dates: start: 20041101, end: 20090401
  18. LORAZEPAM [Concomitant]
  19. LASIX [Concomitant]
  20. PRAVACHOL [Concomitant]
  21. GABAPENTIN [Concomitant]

REACTIONS (42)
  - BURNING SENSATION [None]
  - GLYCOSYLATED HAEMOGLOBIN INCREASED [None]
  - NEPHROLITHIASIS [None]
  - GLAUCOMA [None]
  - ASTHENIA [None]
  - SKIN LESION [None]
  - DYSPNOEA [None]
  - HEADACHE [None]
  - GAIT DISTURBANCE [None]
  - BLOOD PRESSURE SYSTOLIC INCREASED [None]
  - HYPERLIPIDAEMIA [None]
  - INSOMNIA [None]
  - EXTRAPYRAMIDAL DISORDER [None]
  - JAW DISORDER [None]
  - INCORRECT DRUG ADMINISTRATION DURATION [None]
  - PAIN IN EXTREMITY [None]
  - PARAESTHESIA [None]
  - DIABETIC NEUROPATHY [None]
  - HYPERTENSION [None]
  - BRONCHITIS [None]
  - RENAL FAILURE [None]
  - TARDIVE DYSKINESIA [None]
  - DYSKINESIA [None]
  - NEUROPATHY PERIPHERAL [None]
  - NECK PAIN [None]
  - TREMOR [None]
  - ECONOMIC PROBLEM [None]
  - COUGH [None]
  - EAR PAIN [None]
  - ABDOMINAL PAIN UPPER [None]
  - SENSORY DISTURBANCE [None]
  - SLEEP APNOEA SYNDROME [None]
  - ECCHYMOSIS [None]
  - ABDOMINAL MASS [None]
  - OEDEMA PERIPHERAL [None]
  - BRADYKINESIA [None]
  - EMOTIONAL DISTRESS [None]
  - BLOOD TRIGLYCERIDES INCREASED [None]
  - MUSCULOSKELETAL PAIN [None]
  - DIABETES MELLITUS [None]
  - SINUS CONGESTION [None]
  - PIGMENTATION DISORDER [None]
